FAERS Safety Report 21391477 (Version 1)
Quarter: 2022Q3

REPORT INFORMATION
  Report Type: Spontaneous
  Country: JP (occurrence: JP)
  Receive Date: 20220929
  Receipt Date: 20220929
  Transmission Date: 20221027
  Serious: Yes (Hospitalization)
  Sender: FDA-Public Use
  Company Number: JP-NOVARTISPH-NVSJ2022JP098205

PATIENT
  Sex: Female

DRUGS (3)
  1. AMLODIPINE BESYLATE [Suspect]
     Active Substance: AMLODIPINE BESYLATE
     Indication: Hypertension
     Dosage: 150 MG
     Route: 048
  2. TRAZODONE HCL [Suspect]
     Active Substance: TRAZODONE HYDROCHLORIDE
     Indication: Depression
     Dosage: 350 MG
     Route: 065
  3. LEMBOREXANT [Suspect]
     Active Substance: LEMBOREXANT
     Indication: Product used for unknown indication
     Dosage: 60 MG
     Route: 065

REACTIONS (4)
  - Blood pressure decreased [Recovering/Resolving]
  - Altered state of consciousness [Unknown]
  - Shock [Unknown]
  - Intentional overdose [Unknown]
